FAERS Safety Report 8213299-0 (Version None)
Quarter: 2012Q1

REPORT INFORMATION
  Report Type: 
  Country: None (occurrence: None)
  Receive Date: 20120315
  Receipt Date: 20120229
  Transmission Date: 20120608
  Serious: Yes (Other)
  Sender: FDA-Public Use
  Company Number: PHHY2012FR017950

PATIENT

DRUGS (2)
  1. PREDNISONE TAB [Concomitant]
     Dosage: UNK UKN, UNK
  2. CYCLOSPORINE [Suspect]
     Indication: NEPHROTIC SYNDROME
     Dosage: UNK UKN, UNK
     Route: 048

REACTIONS (4)
  - RENAL IMPAIRMENT [None]
  - RENAL FAILURE [None]
  - NEPHROTIC SYNDROME [None]
  - BLOOD CREATININE INCREASED [None]
